FAERS Safety Report 8220531-6 (Version None)
Quarter: 2012Q1

REPORT INFORMATION
  Report Type: 
  Country: None (occurrence: None)
  Receive Date: 20120320
  Receipt Date: 20120305
  Transmission Date: 20120608
  Serious: Yes (Hospitalization)
  Sender: FDA-Public Use
  Company Number: US-ALEXION-A201200135

PATIENT
  Sex: Female

DRUGS (6)
  1. RESTORIL [Concomitant]
     Indication: INSOMNIA
  2. PREDNISONE [Concomitant]
     Dosage: 10 MG, UNK
  3. SOLIRIS [Suspect]
     Dosage: 900 MG, Q2W
     Route: 042
     Dates: start: 20111229
  4. PROTONIX [Concomitant]
  5. SOLIRIS [Suspect]
     Indication: PAROXYSMAL NOCTURNAL HAEMOGLOBINURIA
     Dosage: 600 MG, QW
     Route: 042
     Dates: start: 20111128, end: 20111201
  6. PREDNISONE [Concomitant]
     Dosage: 5 MG, UNK

REACTIONS (4)
  - OEDEMA PERIPHERAL [None]
  - NAUSEA [None]
  - DYSPNOEA [None]
  - PRURITUS [None]
